FAERS Safety Report 13667795 (Version 1)
Quarter: 2017Q2

REPORT INFORMATION
  Report Type: Spontaneous
  Country: PT (occurrence: PT)
  Receive Date: 20170620
  Receipt Date: 20170620
  Transmission Date: 20170830
  Serious: Yes (Hospitalization)
  Sender: FDA-Public Use
  Company Number: PT-ACCORD-052790

PATIENT
  Age: 67 Year
  Sex: Female
  Weight: 50 kg

DRUGS (8)
  1. CAPECITABINE. [Concomitant]
     Active Substance: CAPECITABINE
     Dosage: STARTING EACH CYCLE OF CHEMOTHERAPY (HAD NOT YET BEEN ADMINISTERED ON THE DAY OF ADR)
     Route: 048
     Dates: start: 20170510
  2. METOCLOPRAMIDE. [Concomitant]
     Active Substance: METOCLOPRAMIDE
     Dosage: STARTING OF 21 DAYS CYCLES
     Route: 048
     Dates: start: 20170510
  3. PANTOPRAZOLE [Concomitant]
     Active Substance: PANTOPRAZOLE
     Route: 048
  4. GLUCOSE/GLUCOSE MONOHYDRATE/GLUCOSE OXIDASE [Concomitant]
     Dosage: 250 ML OF GLUCOSE 5% (50MG / ML) - 21-DAY CHEMOTHERAPY CYCLE
     Route: 042
     Dates: start: 20170510
  5. LORAZEPAM. [Concomitant]
     Active Substance: LORAZEPAM
     Dosage: 21-DAY CHEMOTHERAPY CYCLE
     Route: 048
     Dates: start: 20170510
  6. ONDANSETRON [Concomitant]
     Active Substance: ONDANSETRON
     Dosage: 21-DAY CHEMOTHERAPY CYCLE,
     Route: 042
     Dates: start: 20170510
  7. OXALIPLATIN ACCORD [Suspect]
     Active Substance: OXALIPLATIN
     Indication: ADENOCARCINOMA OF COLON
     Dosage: 187.2 MG DILUTED IN 250 ML OF 5% GLUCOSE IN 21 DAY CYCLES. ?STRENGTH: 5 MG/ML
     Route: 042
     Dates: start: 20170510
  8. DEXAMETHASONE. [Concomitant]
     Active Substance: DEXAMETHASONE
     Dosage: 21-DAY CHEMOTHERAPY CYCLE
     Route: 042
     Dates: start: 20170510

REACTIONS (5)
  - Malaise [Recovered/Resolved]
  - Mobility decreased [Recovered/Resolved]
  - Tremor [Recovered/Resolved]
  - Dyskinesia [Recovered/Resolved]
  - Dysarthria [Recovered/Resolved]

NARRATIVE: CASE EVENT DATE: 20170531
